FAERS Safety Report 10353789 (Version 1)
Quarter: 2014Q3

REPORT INFORMATION
  Report Type: Spontaneous
  Country: US (occurrence: None)
  Receive Date: 20140729
  Receipt Date: 20140729
  Transmission Date: 20150326
  Serious: Yes (Other)
  Sender: FDA-Public Use
  Company Number: None

PATIENT
  Age: 33 Year
  Sex: Female
  Weight: 54.4 kg

DRUGS (1)
  1. LEVAQUIN [Suspect]
     Active Substance: LEVOFLOXACIN
     Indication: URINARY TRACT INFECTION
     Route: 048

REACTIONS (4)
  - Pain [None]
  - Arthralgia [None]
  - Activities of daily living impaired [None]
  - Hypokinesia [None]

NARRATIVE: CASE EVENT DATE: 20140723
